FAERS Safety Report 12429653 (Version 1)
Quarter: 2016Q2

REPORT INFORMATION
  Report Type: Spontaneous
  Country: US (occurrence: US)
  Receive Date: 20160602
  Receipt Date: 20160602
  Transmission Date: 20160815
  Serious: Yes (Other)
  Sender: FDA-Public Use
  Company Number: US-STANDARD HOMEOPATHIC COMPANY-1053119

PATIENT
  Age: 10 Month
  Sex: Male

DRUGS (1)
  1. BABY TEETHING GEL (HYLAND HOMEOPATHIC) [Suspect]
     Active Substance: ATROPA BELLADONNA\CALCIUM PHOSPHATE\CHAMOMILE\COFFEA ARABICA FRUIT
     Indication: TEETHING
     Route: 048

REACTIONS (5)
  - Body temperature abnormal [Unknown]
  - Muscle twitching [Unknown]
  - Unresponsive to stimuli [Unknown]
  - Staring [Unknown]
  - Flushing [None]

NARRATIVE: CASE EVENT DATE: 20160520
